FAERS Safety Report 6120367-6 (Version None)
Quarter: 2009Q1

REPORT INFORMATION
  Report Type: 
  Country: None (occurrence: None)
  Receive Date: 20090313
  Receipt Date: 20090313
  Transmission Date: 20090719
  Serious: Yes (Other)
  Sender: FDA-Public Use
  Company Number: None

PATIENT
  Age: 13 Year
  Sex: Male
  Weight: 53.5244 kg

DRUGS (2)
  1. ZYRTEC [Suspect]
     Indication: COUGH
     Dosage: 1 PILL 1X PO
     Route: 048
     Dates: start: 20090311, end: 20090311
  2. ZICAM [Suspect]
     Indication: COUGH
     Dosage: 1 TABLESPOON 1X PO
     Route: 048
     Dates: start: 20090311, end: 20090311

REACTIONS (5)
  - AGGRESSION [None]
  - AGITATION [None]
  - IRRITABILITY [None]
  - MOOD ALTERED [None]
  - MOOD SWINGS [None]
